FAERS Safety Report 13470565 (Version 1)
Quarter: 2017Q2

REPORT INFORMATION
  Report Type: Report from Study
  Country: US (occurrence: US)
  Receive Date: 20170424
  Receipt Date: 20170424
  Transmission Date: 20170830
  Serious: No
  Sender: FDA-Public Use
  Company Number: PHEH2017US011848

PATIENT
  Sex: Female

DRUGS (1)
  1. GILENYA [Suspect]
     Active Substance: FINGOLIMOD HYDROCHLORIDE
     Indication: EXPOSURE VIA BODY FLUID
     Dosage: PARTNER DOSE: UNKNOWN
     Route: 065

REACTIONS (2)
  - Normal newborn [Unknown]
  - Exposure via partner [Unknown]

NARRATIVE: CASE EVENT DATE: 201601
